FAERS Safety Report 5629817-2 (Version None)
Quarter: 2008Q1

REPORT INFORMATION
  Report Type: 
  Country: None (occurrence: None)
  Receive Date: 20080218
  Receipt Date: 20080212
  Transmission Date: 20080703
  Serious: Yes (Other)
  Sender: FDA-Public Use
  Company Number: PHFR2008GB00875

PATIENT
  Sex: Male

DRUGS (1)
  1. MELLARIL [Suspect]
     Route: 065

REACTIONS (1)
  - PARKINSON'S DISEASE [None]
